FAERS Safety Report 6688195-0 (Version None)
Quarter: 2010Q2

REPORT INFORMATION
  Report Type: 
  Country: None (occurrence: None)
  Receive Date: 20100420
  Receipt Date: 20100411
  Transmission Date: 20101027
  Serious: Yes (Other)
  Sender: FDA-Public Use
  Company Number: CH-PFIZER INC-2010045522

PATIENT
  Age: 57 Year
  Sex: Male

DRUGS (4)
  1. SORTIS [Suspect]
  2. ASPIRIN [Suspect]
  3. TRIATEC [Suspect]
  4. ISOPTIN [Suspect]

REACTIONS (1)
  - ERECTILE DYSFUNCTION [None]
